FAERS Safety Report 14028130 (Version 1)
Quarter: 2017Q4

REPORT INFORMATION
  Report Type: Spontaneous
  Country: US (occurrence: US)
  Receive Date: 20171002
  Receipt Date: 20171002
  Transmission Date: 20180321
  Serious: Yes (Hospitalization, Other)
  Sender: FDA-Public Use
  Company Number: US-ASTRAZENECA-2004UW20385

PATIENT
  Age: 440 Month
  Sex: Male

DRUGS (5)
  1. HALDOL [Suspect]
     Active Substance: HALOPERIDOL
     Dosage: UNKNOWN
     Route: 065
     Dates: end: 20020406
  2. PAXIL [Suspect]
     Active Substance: PAROXETINE HYDROCHLORIDE
     Indication: DEPRESSION
     Route: 065
     Dates: end: 20030423
  3. PAXIL [Suspect]
     Active Substance: PAROXETINE HYDROCHLORIDE
     Indication: ANXIETY
     Route: 065
     Dates: end: 20030423
  4. SEROQUEL [Suspect]
     Active Substance: QUETIAPINE FUMARATE
     Route: 048
     Dates: start: 200106, end: 20020406
  5. TRAZODONE [Concomitant]
     Active Substance: TRAZODONE HYDROCHLORIDE
     Route: 065
     Dates: end: 20040406

REACTIONS (5)
  - Weight increased [Unknown]
  - Hyperprolactinaemia [Unknown]
  - Gynaecomastia [Unknown]
  - Hormone level abnormal [Unknown]
  - Breast discharge [Unknown]

NARRATIVE: CASE EVENT DATE: 200305
